FAERS Safety Report 7096046-8 (Version None)
Quarter: 2010Q4

REPORT INFORMATION
  Report Type: 
  Country: None (occurrence: None)
  Receive Date: 20101111
  Receipt Date: 20101101
  Transmission Date: 20110411
  Serious: Yes (Other)
  Sender: FDA-Public Use
  Company Number: PHHY2010BR74158

PATIENT
  Sex: Male

DRUGS (1)
  1. RASILEZ [Suspect]
     Route: 048

REACTIONS (4)
  - BLOOD PRESSURE DECREASED [None]
  - CONVULSION [None]
  - MALAISE [None]
  - SWELLING [None]
